FAERS Safety Report 6202451-1 (Version None)
Quarter: 2009Q2

REPORT INFORMATION
  Report Type: 
  Country: None (occurrence: None)
  Receive Date: 20090526
  Receipt Date: 20090514
  Transmission Date: 20091009
  Serious: Yes (Other)
  Sender: FDA-Public Use
  Company Number: US-PFIZER INC-2005134022

PATIENT
  Sex: Female
  Weight: 86 kg

DRUGS (6)
  1. PROVERA [Suspect]
     Indication: HORMONE REPLACEMENT THERAPY
     Route: 065
     Dates: start: 19950101, end: 20010101
  2. PREMARIN [Suspect]
     Indication: HORMONE REPLACEMENT THERAPY
     Route: 065
     Dates: start: 19950101, end: 20010101
  3. PREMPRO [Suspect]
     Indication: HORMONE REPLACEMENT THERAPY
     Dosage: 0.625/2.5 MG
     Route: 065
     Dates: start: 19960101, end: 20010101
  4. ATENOLOL [Concomitant]
     Indication: TACHYCARDIA
     Dosage: UNK
     Dates: start: 19890101
  5. PRILOSEC [Concomitant]
     Indication: HIATUS HERNIA
     Dosage: UNK
     Dates: start: 19960101
  6. ALPRAZOLAM [Concomitant]
     Indication: ANXIETY
     Dosage: UNK
     Dates: start: 19970101, end: 20030101

REACTIONS (1)
  - BREAST CANCER FEMALE [None]
